FAERS Safety Report 4738584-6 (Version None)
Quarter: 2005Q3

REPORT INFORMATION
  Report Type: 
  Country: None (occurrence: None)
  Receive Date: 20050803
  Receipt Date: 20050726
  Transmission Date: 20060218
  Serious: Yes (Other)
  Sender: FDA-Public Use
  Company Number: 2005015022

PATIENT
  Age: 67 Year
  Sex: Female
  Weight: 81.6475 kg

DRUGS (7)
  1. CELEBREX [Suspect]
     Indication: OSTEOARTHRITIS
     Dosage: 200 MG (20 MG, 1 IN 1 D) ORAL
     Route: 048
     Dates: start: 19991221
  2. BEXTRA [Suspect]
     Indication: ARTHRALGIA
     Dosage: 20 MG (10 MG, 1 IN 1 D) ORAL
     Route: 048
     Dates: end: 20040101
  3. ZOCOR [Concomitant]
  4. NEXIUM [Concomitant]
  5. MIACALCIN [Concomitant]
  6. ASPIRIN [Concomitant]
  7. SOMA [Concomitant]

REACTIONS (8)
  - ARTHRALGIA [None]
  - ARTHROPATHY [None]
  - CARDIAC VALVE DISEASE [None]
  - CHEST PAIN [None]
  - GLAUCOMA [None]
  - INFLAMMATION [None]
  - MUSCULOSKELETAL STIFFNESS [None]
  - TENDERNESS [None]
